FAERS Safety Report 12221700 (Version 2)
Quarter: 2016Q2

REPORT INFORMATION
  Report Type: Spontaneous
  Country: IT (occurrence: IT)
  Receive Date: 20160330
  Receipt Date: 20160405
  Transmission Date: 20160815
  Serious: Yes (Hospitalization)
  Sender: FDA-Public Use
  Company Number: IT-TEVA-645604ACC

PATIENT
  Age: 48 Year
  Sex: Male

DRUGS (6)
  1. SEROQUEL-ASTRAZENECA S.P.A. [Concomitant]
     Indication: BIPOLAR DISORDER
     Route: 048
  2. LITIO CARBONATO - 300 MG - A.F.O.M. MEDICAL S.P.A. [Concomitant]
     Indication: BIPOLAR DISORDER
     Route: 048
  3. TAVOR (LORAZEPAM) [Suspect]
     Active Substance: LORAZEPAM
     Indication: DRUG ABUSE
     Route: 048
  4. SERTRALINA AUROBINDO PHARMA ITALIA - AUROBINDO PHARMA ITALIA S.R.L. [Concomitant]
     Indication: BIPOLAR DISORDER
     Route: 048
  5. QUETIAPINA TEVA ITALIA - 300 MG COMPRESSE A RILASCIO PROLUNGATO [Suspect]
     Active Substance: QUETIAPINE
     Indication: DRUG ABUSE
     Route: 048
  6. OLANZAPINA ABC - ABC FARMACEUTICI S.P.A. [Concomitant]
     Indication: BIPOLAR DISORDER
     Route: 048

REACTIONS (4)
  - Drug abuse [Recovering/Resolving]
  - Intentional self-injury [Unknown]
  - Toxicity to various agents [Unknown]
  - Disorientation [Recovering/Resolving]

NARRATIVE: CASE EVENT DATE: 20160206
